FAERS Safety Report 8006989-6 (Version None)
Quarter: 2011Q4

REPORT INFORMATION
  Report Type: 
  Country: None (occurrence: None)
  Receive Date: 20111227
  Receipt Date: 20111214
  Transmission Date: 20120403
  Serious: Yes (Other)
  Sender: FDA-Public Use
  Company Number: PHEH2011US011691

PATIENT
  Age: 51 Year
  Sex: Male

DRUGS (5)
  1. FUROSEMIDE [Suspect]
     Dosage: 20 MG, UNK
  2. HUMALOG [Concomitant]
  3. CRESTOR [Concomitant]
  4. VALTURNA [Suspect]
     Dosage: 1 DF(300/320 MG), PER DAY
  5. LANTUS [Concomitant]

REACTIONS (1)
  - CEREBROVASCULAR ACCIDENT [None]
